FAERS Safety Report 8605355-X (Version None)
Quarter: 2012Q3

REPORT INFORMATION
  Report Type: 
  Country: None (occurrence: None)
  Receive Date: 20120820
  Receipt Date: 20120809
  Transmission Date: 20120928
  Serious: Yes (Other)
  Sender: FDA-Public Use
  Company Number: US-ASTRAZENECA-2008UW20791

PATIENT
  Age: 72 Year
  Sex: Female
  Weight: 104.3 kg

DRUGS (8)
  1. ZOCOR [Concomitant]
  2. CRESTOR [Suspect]
     Route: 048
  3. HIGH BLOOD PRESSURE PILLS [Concomitant]
  4. DIOVAN [Concomitant]
     Route: 048
  5. LIPITOR [Concomitant]
  6. CRESTOR [Suspect]
     Indication: BLOOD CHOLESTEROL INCREASED
     Route: 048
  7. ARIMIDEX [Suspect]
     Route: 048
     Dates: start: 20030101
  8. HYDROCHLOROTHIAZIDE [Concomitant]
     Route: 048

REACTIONS (8)
  - CEREBROVASCULAR ACCIDENT [None]
  - MYALGIA [None]
  - SLEEP DISORDER DUE TO GENERAL MEDICAL CONDITION, INSOMNIA TYPE [None]
  - DRUG INTOLERANCE [None]
  - MUSCLE SPASMS [None]
  - ARTHRITIS [None]
  - ARTHRALGIA [None]
  - INTENTIONAL DRUG MISUSE [None]
